FAERS Safety Report 5789112-8 (Version None)
Quarter: 2008Q2

REPORT INFORMATION
  Report Type: 
  Country: None (occurrence: None)
  Receive Date: 20080625
  Receipt Date: 20080625
  Transmission Date: 20081010
  Serious: Yes (Life-Threatening, Hospitalization, Disabling)
  Sender: FDA-Public Use
  Company Number: None

PATIENT
  Age: 56 Year
  Sex: Female
  Weight: 63.5036 kg

DRUGS (7)
  1. CHANTIX [Suspect]
     Indication: SMOKING CESSATION THERAPY
     Dates: start: 20070701, end: 20071201
  2. CYMBALTA [Concomitant]
  3. ZEGERID [Concomitant]
  4. REGLAN [Concomitant]
  5. ADVAIR DISKUS 100/50 [Concomitant]
  6. NEURONTIN [Concomitant]
  7. SOMA [Concomitant]

REACTIONS (7)
  - ANGER [None]
  - ANXIETY [None]
  - CONFUSIONAL STATE [None]
  - DISTURBANCE IN ATTENTION [None]
  - LETHARGY [None]
  - MAJOR DEPRESSION [None]
  - SUICIDAL IDEATION [None]
